FAERS Safety Report 6385258-4 (Version None)
Quarter: 2009Q4

REPORT INFORMATION
  Report Type: 
  Country: None (occurrence: None)
  Receive Date: 20091002
  Receipt Date: 20080724
  Transmission Date: 20100525
  Serious: No
  Sender: FDA-Public Use
  Company Number: US-ASTRAZENECA-2008UW15335

PATIENT
  Age: 76 Year
  Sex: Female

DRUGS (5)
  1. ARIMIDEX [Suspect]
     Route: 048
     Dates: start: 20040101
  2. WATER PILL [Concomitant]
  3. HIGH BLOOD PRESSURE PILL [Concomitant]
  4. ASPIRIN [Concomitant]
  5. DIABETES MEDICINE [Concomitant]

REACTIONS (2)
  - ARTHRALGIA [None]
  - DRY SKIN [None]
